FAERS Safety Report 21855530 (Version 3)
Quarter: 2023Q1

REPORT INFORMATION
  Report Type: Spontaneous
  Country: DE (occurrence: DE)
  Receive Date: 20230112
  Receipt Date: 20230120
  Transmission Date: 20230418
  Serious: Yes (Hospitalization, Other)
  Sender: FDA-Public Use
  Company Number: DE-BoehringerIngelheim-2023-BI-212375

PATIENT
  Age: 23 Year
  Sex: Male
  Weight: 117 kg

DRUGS (4)
  1. JARDIANCE [Suspect]
     Active Substance: EMPAGLIFLOZIN
     Indication: Type 2 diabetes mellitus
     Dosage: 100 FILMTABL. N3: 1-0-0
     Route: 048
  2. DULAGLUTIDE [Suspect]
     Active Substance: DULAGLUTIDE
     Indication: Type 2 diabetes mellitus
     Route: 058
  3. JANUMET [Suspect]
     Active Substance: METFORMIN HYDROCHLORIDE\SITAGLIPTIN PHOSPHATE
     Indication: Type 2 diabetes mellitus
     Dosage: 50/1000 MG CC-PHARMA 196 FILMTABLETTEN N3: 1-0-1
  4. Abasaglar 100 E/ml Inj.-Lsg. KwikPen 5x3 ml N1 [Concomitant]
     Indication: Type 2 diabetes mellitus
     Dosage: 100 E/ML INJ.LSG. KWIKPEN 5X3 ML N1: 0-0-0-35 IU S.C. (10:00 P.M.)
     Route: 058
     Dates: end: 2018

REACTIONS (4)
  - Ketoacidosis [Recovered/Resolved]
  - Lactic acidosis [Unknown]
  - Hypoglycaemia [Unknown]
  - Metabolic acidosis [Unknown]

NARRATIVE: CASE EVENT DATE: 20181017
